FAERS Safety Report 20347329 (Version 1)
Quarter: 2022Q1

REPORT INFORMATION
  Report Type: Report from Study
  Country: US (occurrence: US)
  Receive Date: 20220118
  Receipt Date: 20220118
  Transmission Date: 20220423
  Serious: Yes (Hospitalization)
  Sender: FDA-Public Use
  Company Number: US-PFIZER INC-202200020636

PATIENT
  Age: 71 Year
  Sex: Male

DRUGS (11)
  1. SUNITINIB MALATE [Suspect]
     Active Substance: SUNITINIB MALATE
     Dosage: 50 MG, QD ON DAYS 1-28
     Route: 048
     Dates: start: 20170901, end: 20170918
  2. CHLORTHALIDONE [Concomitant]
     Active Substance: CHLORTHALIDONE
  3. CYANOCOBALAMIN [Concomitant]
     Active Substance: CYANOCOBALAMIN
  4. FINASTERIDE [Concomitant]
     Active Substance: FINASTERIDE
  5. GLYBURIDE [Concomitant]
     Active Substance: GLYBURIDE
  6. LEVOTHYROXINE [Concomitant]
     Active Substance: LEVOTHYROXINE
  7. LOSARTAN [Concomitant]
     Active Substance: LOSARTAN
  8. METOPROLOL TARTRATE [Concomitant]
     Active Substance: METOPROLOL TARTRATE
  9. NIFEDIPINE [Concomitant]
     Active Substance: NIFEDIPINE
  10. SIMVASTATIN [Concomitant]
     Active Substance: SIMVASTATIN
  11. TERAZOSIN [Concomitant]
     Active Substance: TERAZOSIN HYDROCHLORIDE

REACTIONS (8)
  - Hyponatraemia [Unknown]
  - Dehydration [Unknown]
  - Diarrhoea [Unknown]
  - Nausea [Unknown]
  - Blood creatinine increased [Unknown]
  - Haemorrhoids [Unknown]
  - Hypoalbuminaemia [Unknown]
  - Vomiting [Unknown]

NARRATIVE: CASE EVENT DATE: 20170914
